FAERS Safety Report 18955593 (Version 1)
Quarter: 2021Q1

REPORT INFORMATION
  Report Type: Spontaneous
  Country: JP (occurrence: JP)
  Receive Date: 20210301
  Receipt Date: 20210301
  Transmission Date: 20210420
  Serious: Yes (Other)
  Sender: FDA-Public Use
  Company Number: JP-PFIZER INC-2021180279

PATIENT
  Age: 64 Year
  Sex: Female

DRUGS (1)
  1. SOLU?MEDROL [Suspect]
     Active Substance: METHYLPREDNISOLONE SODIUM SUCCINATE
     Dosage: UNK
     Route: 042
     Dates: start: 201912, end: 202003

REACTIONS (3)
  - Subcutaneous abscess [Unknown]
  - Pneumocystis jirovecii pneumonia [Unknown]
  - Cytomegalovirus infection [Unknown]
